FAERS Safety Report 16843454 (Version 1)
Quarter: 2019Q3

REPORT INFORMATION
  Report Type: Spontaneous
  Country: US (occurrence: US)
  Receive Date: 20190802
  Receipt Date: 20190802
  Transmission Date: 20191005
  Serious: No
  Sender: FDA-Public Use
  Company Number: None

PATIENT
  Age: 86 Year
  Sex: Female

DRUGS (4)
  1. LETROZOLE. [Concomitant]
     Active Substance: LETROZOLE
  2. ATORVASTATIN [Concomitant]
     Active Substance: ATORVASTATIN
  3. IBRANCE [Suspect]
     Active Substance: PALBOCICLIB
     Dates: start: 20190404
  4. LOSARTAN. [Suspect]
     Active Substance: LOSARTAN

REACTIONS (3)
  - White blood cell count decreased [None]
  - Therapy cessation [None]
  - Alopecia [None]

NARRATIVE: CASE EVENT DATE: 20190802
